FAERS Safety Report 8426791-0 (Version None)
Quarter: 2012Q2

REPORT INFORMATION
  Report Type: 
  Country: None (occurrence: None)
  Receive Date: 20120611
  Receipt Date: 20120607
  Transmission Date: 20120825
  Serious: Yes (Other)
  Sender: FDA-Public Use
  Company Number: PHEH2012US006263

PATIENT
  Sex: Male
  Weight: 54.422 kg

DRUGS (10)
  1. NUVIGIL [Concomitant]
  2. CIALIS [Concomitant]
     Dosage: 5 MG, UNK
  3. GILENYA [Suspect]
     Indication: MULTIPLE SCLEROSIS
     Dosage: 1 DF, QD
     Route: 048
     Dates: start: 20120309
  4. FAMPRIDINE [Concomitant]
  5. GILENYA [Suspect]
     Dosage: 1 DF, QOD
     Route: 048
  6. GILENYA [Suspect]
     Dosage: 0.5 MG, QD
     Route: 048
  7. VITAMIN D [Concomitant]
     Dosage: 5000 U, UNK
  8. MODAFINIL [Concomitant]
     Dosage: UNK UKN, UNK
  9. CENTRUM [Concomitant]
     Dosage: UNK UKN, UNK
  10. MULTI-VITAMINS [Concomitant]

REACTIONS (9)
  - DYSPNOEA [None]
  - PRESYNCOPE [None]
  - CHEST DISCOMFORT [None]
  - INAPPROPRIATE SCHEDULE OF DRUG ADMINISTRATION [None]
  - ASTHENIA [None]
  - DIZZINESS [None]
  - HEART RATE DECREASED [None]
  - MOVEMENT DISORDER [None]
  - CHEST PAIN [None]
